FAERS Safety Report 8373499-6 (Version None)
Quarter: 2012Q2

REPORT INFORMATION
  Report Type: 
  Country: None (occurrence: None)
  Receive Date: 20120517
  Receipt Date: 20120510
  Transmission Date: 20120825
  Serious: Yes (Hospitalization, Other)
  Sender: FDA-Public Use
  Company Number: TUK2012A00087

PATIENT
  Sex: Female

DRUGS (2)
  1. PIOGLITAZONE [Suspect]
     Indication: PRODUCT USED FOR UNKNOWN INDICATION
     Dosage: 90 MG (45 MG, 2 IN 1 D)
  2. METFORMIN HCL [Concomitant]

REACTIONS (3)
  - BLOOD CALCIUM DECREASED [None]
  - HYPERGLYCAEMIA [None]
  - DRUG PRESCRIBING ERROR [None]
